FAERS Safety Report 6042957-1 (Version None)
Quarter: 2009Q1

REPORT INFORMATION
  Report Type: 
  Country: None (occurrence: None)
  Receive Date: 20090119
  Receipt Date: 20090109
  Transmission Date: 20090719
  Serious: Yes (Hospitalization)
  Sender: FDA-Public Use
  Company Number: FR-ELI_LILLY_AND_COMPANY-FR200901001179

PATIENT
  Sex: Female

DRUGS (6)
  1. HUMULIN N [Suspect]
     Dosage: 10 IU, UNK
     Route: 058
  2. PLAVIX [Concomitant]
     Indication: CEREBROVASCULAR ACCIDENT
     Route: 048
  3. COAPROVEL [Concomitant]
     Indication: HYPERTENSION
     Route: 048
  4. LERCAN [Concomitant]
     Indication: HYPERTENSION
     Route: 048
  5. TRINITRINE [Concomitant]
     Dosage: 1 D/F, DAILY (1/D)
     Route: 062
  6. ACARBOSE [Concomitant]
     Indication: DIABETES MELLITUS
     Dosage: 50 MG, DAILY (1/D)
     Route: 048

REACTIONS (2)
  - FALL [None]
  - HYPOGLYCAEMIA [None]
